FAERS Safety Report 22382988 (Version 1)
Quarter: 2023Q2

REPORT INFORMATION
  Report Type: Spontaneous
  Country: CN (occurrence: CN)
  Receive Date: 20230530
  Receipt Date: 20230530
  Transmission Date: 20230722
  Serious: Yes (Other)
  Sender: FDA-Public Use
  Company Number: None

PATIENT
  Age: 20 Year
  Sex: Female
  Weight: 40 kg

DRUGS (6)
  1. CYCLOPHOSPHAMIDE [Suspect]
     Active Substance: CYCLOPHOSPHAMIDE
     Indication: Acute leukaemia
     Dosage: 1G, QW, DILUTED WITH 500ML OF NS, (ROUTE: INTRA-PUMP INJECTION)
     Route: 050
     Dates: start: 20230402, end: 20230416
  2. SODIUM CHLORIDE [Suspect]
     Active Substance: SODIUM CHLORIDE
     Indication: Medication dilution
     Dosage: (INJECTION), 500ML, QW, USED TO DILUTE 1G OF CYCLOPHOSPHAMIDE, (ROUTE: INTRA-PUMP INJECTION)
     Route: 050
     Dates: start: 20230402, end: 20230416
  3. SODIUM CHLORIDE [Suspect]
     Active Substance: SODIUM CHLORIDE
     Dosage: 100 ML, QW, USED TO DILUTE 2 MG OF VINCRISTINE SULFATE
     Route: 058
     Dates: start: 20230402, end: 20230423
  4. SODIUM CHLORIDE [Suspect]
     Active Substance: SODIUM CHLORIDE
     Dosage: 100ML, QW, USED TO DILUTE 10 MG OF MITOXANTRONE HYDROCHLORIDE, (ROUTE: INTRA-PUMP INJECTION)
     Route: 050
     Dates: start: 20230402, end: 20230416
  5. MITOXANTRONE HYDROCHLORIDE [Suspect]
     Active Substance: MITOXANTRONE HYDROCHLORIDE
     Indication: Acute leukaemia
     Dosage: 10MG, QW, DILUTED WITH 100ML OF NS, (ROUTE: INTRA-PUMP INJECTION)
     Route: 050
     Dates: start: 20230402, end: 20230416
  6. VINCRISTINE SULFATE [Suspect]
     Active Substance: VINCRISTINE SULFATE
     Indication: Acute leukaemia
     Dosage: 2 MG, QW, DILUTED WITH 100 ML OF NS
     Route: 058
     Dates: start: 20230402, end: 20230423

REACTIONS (2)
  - Myelosuppression [Unknown]
  - Full blood count decreased [Unknown]

NARRATIVE: CASE EVENT DATE: 20230421
